FAERS Safety Report 7023511-1 (Version None)
Quarter: 2010Q3

REPORT INFORMATION
  Report Type: 
  Country: None (occurrence: None)
  Receive Date: 20100929
  Receipt Date: 20100929
  Transmission Date: 20110219
  Serious: Yes (Hospitalization)
  Sender: FDA-Public Use
  Company Number: None

PATIENT
  Age: 80 Year
  Sex: Male
  Weight: 80 kg

DRUGS (1)
  1. DONEPEZIL HCL [Suspect]
     Dosage: 10 MG EVERY DAY PO
     Route: 048
     Dates: start: 20090629, end: 20100512

REACTIONS (2)
  - BRADYCARDIA [None]
  - DIZZINESS [None]
